FAERS Safety Report 20891705 (Version 2)
Quarter: 2022Q2

REPORT INFORMATION
  Report Type: Report from Study
  Country: MX (occurrence: MX)
  Receive Date: 20220530
  Receipt Date: 20220615
  Transmission Date: 20220721
  Serious: No
  Sender: FDA-Public Use
  Company Number: MX-NOVARTISPH-PHHY2018MX056249

PATIENT
  Age: 63 Year
  Sex: Female
  Weight: 76 kg

DRUGS (14)
  1. METFORMIN HYDROCHLORIDE\VILDAGLIPTIN [Suspect]
     Active Substance: METFORMIN HYDROCHLORIDE\VILDAGLIPTIN
     Indication: Blood glucose abnormal
     Dosage: 1 DF (850MG METFORMIN AND 50MG VIDAGLIPTIN), QD, APPROXIMATELY 3 YEARS AGO
     Route: 048
  2. METFORMIN HYDROCHLORIDE\VILDAGLIPTIN [Suspect]
     Active Substance: METFORMIN HYDROCHLORIDE\VILDAGLIPTIN
     Indication: Diabetes mellitus
     Dosage: 1 DF (850MG METFORMIN AND 50MG VIDAGLIPTIN), QD, APPROXIMATELY 3 YEARS AGO
     Route: 048
  3. METFORMIN HYDROCHLORIDE\VILDAGLIPTIN [Suspect]
     Active Substance: METFORMIN HYDROCHLORIDE\VILDAGLIPTIN
     Dosage: 2 DF, QD (850MG METFORMIN AND 50MG VIDAGLIPTIN)
     Route: 065
  4. METFORMIN HYDROCHLORIDE\VILDAGLIPTIN [Suspect]
     Active Substance: METFORMIN HYDROCHLORIDE\VILDAGLIPTIN
     Dosage: 1 DOSAGE FORM, QD (850MG METFORMIN AND 50MG VIDAGLIPTIN), APPROXIMATELY 3 YEARS AGO )
     Route: 048
     Dates: start: 2010, end: 2015
  5. METFORMIN HYDROCHLORIDE\VILDAGLIPTIN [Suspect]
     Active Substance: METFORMIN HYDROCHLORIDE\VILDAGLIPTIN
     Dosage: 1 DOSAGE FORM, (50/1000 MG), QD
     Route: 048
     Dates: start: 2015, end: 202112
  6. METFORMIN HYDROCHLORIDE\VILDAGLIPTIN [Suspect]
     Active Substance: METFORMIN HYDROCHLORIDE\VILDAGLIPTIN
     Dosage: 1 DOSAGE FORM, (50/1000 MG), QD
     Route: 048
     Dates: start: 20220420, end: 20220507
  7. VILDAGLIPTIN [Suspect]
     Active Substance: VILDAGLIPTIN
     Indication: Blood glucose abnormal
     Dosage: 50 MG, QD
     Route: 048
     Dates: start: 20220508
  8. VILDAGLIPTIN [Suspect]
     Active Substance: VILDAGLIPTIN
     Indication: Diabetes mellitus
  9. METFORMIN [Suspect]
     Active Substance: METFORMIN HYDROCHLORIDE
     Indication: Blood glucose abnormal
     Dosage: 1 G
     Route: 048
     Dates: start: 20220508
  10. FELODIPINE [Concomitant]
     Active Substance: FELODIPINE
     Indication: Blood pressure abnormal
     Dosage: 2 DF, BID (1 IN THE MORNIINGA ND 1 AT NIGHT)
     Route: 065
  11. ENALAPRIL [Concomitant]
     Active Substance: ENALAPRIL
     Indication: Blood pressure abnormal
     Dosage: 2 OT, BID (1 IN MORNING AND 1 AT NIGHT)
     Route: 065
  12. ASPIRIN [Concomitant]
     Active Substance: ASPIRIN
     Indication: Cardiac disorder
     Dosage: 1 DF, QHS, 8 OR 9 YEARS AGO
     Route: 065
  13. HIDROSMIN [Concomitant]
     Active Substance: HIDROSMIN
     Indication: Peripheral vascular disorder
     Dosage: 1 DF, (AT FIRST IT WAS 2)
     Route: 065
  14. ATORVASTATIN [Concomitant]
     Active Substance: ATORVASTATIN
     Indication: Blood cholesterol abnormal
     Dosage: UNK
     Route: 065

REACTIONS (8)
  - Influenza [Not Recovered/Not Resolved]
  - Hypersensitivity [Not Recovered/Not Resolved]
  - Oropharyngeal pain [Unknown]
  - Pain [Unknown]
  - Blood glucose increased [Recovered/Resolved]
  - Arthralgia [Recovering/Resolving]
  - Urinary tract infection [Recovered/Resolved]
  - Neck pain [Recovered/Resolved]

NARRATIVE: CASE EVENT DATE: 20180319
